FAERS Safety Report 5026427-5 (Version None)
Quarter: 2006Q2

REPORT INFORMATION
  Report Type: 
  Country: None (occurrence: None)
  Receive Date: 20060615
  Receipt Date: 20060607
  Transmission Date: 20061013
  Serious: Yes (Hospitalization)
  Sender: FDA-Public Use
  Company Number: PHBS2006US08496

PATIENT
  Age: 2 Year
  Sex: Male
  Weight: 10.2 kg

DRUGS (3)
  1. PREDNISONE [Concomitant]
     Route: 065
  2. OXCARBAZEPINE [Suspect]
     Indication: CONVULSION
     Dosage: 150 MG, BID
     Route: 065
  3. OXCARBAZEPINE [Suspect]
     Dosage: 180 MG, BID
     Route: 065

REACTIONS (3)
  - GRAND MAL CONVULSION [None]
  - HYPONATRAEMIA [None]
  - INAPPROPRIATE ANTIDIURETIC HORMONE SECRETION [None]
